FAERS Safety Report 17048498 (Version 2)
Quarter: 2019Q4

REPORT INFORMATION
  Report Type: Spontaneous
  Country: US (occurrence: US)
  Receive Date: 20191119
  Receipt Date: 20191122
  Transmission Date: 20200122
  Serious: No
  Sender: FDA-Public Use
  Company Number: US-PFIZER INC-2019500706

PATIENT
  Age: 72 Year
  Sex: Female
  Weight: 83.91 kg

DRUGS (1)
  1. PRISTIQ EXTENDED-RELEASE [Suspect]
     Active Substance: DESVENLAFAXINE SUCCINATE
     Indication: DEPRESSION
     Dosage: 100 MG ONCE IN MORNING
     Route: 048
     Dates: end: 201909

REACTIONS (2)
  - Stress [Unknown]
  - Depression [Unknown]
